FAERS Safety Report 24754726 (Version 3)
Quarter: 2025Q3

REPORT INFORMATION
  Report Type: Spontaneous
  Country: JP (occurrence: JP)
  Receive Date: 20241219
  Receipt Date: 20250810
  Transmission Date: 20251021
  Serious: No
  Sender: ALEXION PHARMACEUTICALS
  Company Number: JP-ASTRAZENECA-240140702_013120_P_1

PATIENT
  Age: 54 Year
  Sex: Male
  Weight: 51 kg

DRUGS (5)
  1. DURVALUMAB [Suspect]
     Active Substance: DURVALUMAB
     Indication: Non-small cell lung cancer
     Dosage: 1500 MILLIGRAM, Q2W
     Dates: start: 20241210
  2. LANSOPRAZOLE [Concomitant]
     Active Substance: LANSOPRAZOLE
     Indication: Gastrooesophageal reflux disease
     Dosage: 30 MILLIGRAM, QD
     Dates: start: 20241122
  3. ALLOID G [Concomitant]
     Active Substance: SODIUM ALGINATE
     Indication: Radiation oesophagitis
     Dosage: 30 MILLIGRAM, TID
     Dates: start: 20241029
  4. CALONAL [Concomitant]
     Active Substance: ACETAMINOPHEN
     Indication: Radiation oesophagitis
  5. CALONAL [Concomitant]
     Active Substance: ACETAMINOPHEN

REACTIONS (2)
  - Lacrimation increased [Recovered/Resolved]
  - Periorbital oedema [Recovered/Resolved]

NARRATIVE: CASE EVENT DATE: 20241210
